FAERS Safety Report 6344072-6 (Version None)
Quarter: 2009Q3

REPORT INFORMATION
  Report Type: 
  Country: None (occurrence: None)
  Receive Date: 20090908
  Receipt Date: 20090902
  Transmission Date: 20100115
  Serious: Yes (Hospitalization)
  Sender: FDA-Public Use
  Company Number: US-MERCK-0512USA00919

PATIENT
  Age: 54 Year
  Sex: Female

DRUGS (4)
  1. VYTORIN [Suspect]
     Indication: BLOOD CHOLESTEROL
     Route: 048
     Dates: start: 20050101, end: 20051001
  2. ZESTRIL [Suspect]
     Route: 065
     Dates: end: 20051207
  3. ZESTRIL [Suspect]
     Route: 065
     Dates: start: 20060901
  4. GLUCOPHAGE [Concomitant]
     Route: 065

REACTIONS (8)
  - AMNESIA [None]
  - ANTIPSYCHOTIC DRUG LEVEL INCREASED [None]
  - BURNING SENSATION [None]
  - CONFUSIONAL STATE [None]
  - FALL [None]
  - HYPERACUSIS [None]
  - MYALGIA [None]
  - VISION BLURRED [None]
